FAERS Safety Report 24766668 (Version 1)
Quarter: 2024Q4

REPORT INFORMATION
  Report Type: Spontaneous
  Country: FR (occurrence: FR)
  Receive Date: 20241223
  Receipt Date: 20241223
  Transmission Date: 20250115
  Serious: Yes (Hospitalization)
  Sender: TAIHO ONCOLOGY INC
  Company Number: None

PATIENT
  Age: 53 Year
  Sex: Male
  Weight: 68 kg

DRUGS (2)
  1. LONSURF [Suspect]
     Active Substance: TIPIRACIL HYDROCHLORIDE\TRIFLURIDINE
     Indication: Colon cancer metastatic
     Dosage: 35 MG/M2, BID, ON DAYS 1-5 AND DAYS 8-12 OF EACH 28-DAY CYCLE?FORM STRENGTH 15MG AND 20MG
     Route: 048
     Dates: start: 20240916, end: 20240924
  2. AVASTIN [Suspect]
     Active Substance: BEVACIZUMAB
     Indication: Colon cancer metastatic
     Dosage: 5 MG/KG, EVERY 2 WEEKS?CONCENTRATE FOR SOLUTION FOR INFUSION
     Route: 042
     Dates: start: 20240718, end: 20240924

REACTIONS (1)
  - Ischaemic stroke [Recovering/Resolving]

NARRATIVE: CASE EVENT DATE: 20240922
